FAERS Safety Report 4951801-2 (Version None)
Quarter: 2006Q1

REPORT INFORMATION
  Report Type: 
  Country: None (occurrence: None)
  Receive Date: 20060322
  Receipt Date: 20060322
  Transmission Date: 20060701
  Serious: Yes (Other)
  Sender: FDA-Public Use
  Company Number: None

PATIENT
  Age: 52 Year
  Sex: Female
  Weight: 100 kg

DRUGS (3)
  1. CEFAZOLIN [Suspect]
     Indication: PREOPERATIVE CARE
     Dosage: 1 GRAM Q8 HRS IV
     Route: 042
     Dates: start: 20050212, end: 20050225
  2. CEFAZOLIN [Suspect]
     Indication: PROPHYLAXIS
     Dosage: 1 GRAM Q8 HRS IV
     Route: 042
     Dates: start: 20050212, end: 20050225
  3. CEFAZOLIN [Suspect]

REACTIONS (6)
  - INCISION SITE HAEMORRHAGE [None]
  - PHARMACEUTICAL PRODUCT COMPLAINT [None]
  - POOR QUALITY DRUG ADMINISTERED [None]
  - POST PROCEDURAL HAEMATOMA [None]
  - POSTOPERATIVE WOUND INFECTION [None]
  - PROPIONIBACTERIUM INFECTION [None]
